FAERS Safety Report 7790577-0 (Version None)
Quarter: 2011Q3

REPORT INFORMATION
  Report Type: 
  Country: None (occurrence: None)
  Receive Date: 20110930
  Receipt Date: 20110923
  Transmission Date: 20111222
  Serious: Yes (Other)
  Sender: FDA-Public Use
  Company Number: NL-ROXANE LABORATORIES, INC.-2011-RO-01360RO

PATIENT
  Age: 6 Month
  Sex: Male

DRUGS (1)
  1. PROPRANOLOL [Suspect]
     Indication: HAEMANGIOMA

REACTIONS (5)
  - BRONCHIAL HYPERREACTIVITY [None]
  - PERIPHERAL COLDNESS [None]
  - VIRAL INFECTION [None]
  - POOR QUALITY SLEEP [None]
  - DIARRHOEA [None]
